FAERS Safety Report 7717446-6 (Version None)
Quarter: 2011Q3

REPORT INFORMATION
  Report Type: 
  Country: None (occurrence: None)
  Receive Date: 20110824
  Receipt Date: 20110809
  Transmission Date: 20111222
  Serious: Yes (Life-Threatening, Hospitalization)
  Sender: FDA-Public Use
  Company Number: 2011MA011576

PATIENT
  Age: 46 Year
  Sex: Female

DRUGS (2)
  1. LORAZEPAM [Suspect]
     Indication: CATATONIA
  2. METHYLPHENIDATE [Suspect]
     Indication: CATATONIA

REACTIONS (20)
  - SEDATION [None]
  - STAPHYLOCOCCAL INFECTION [None]
  - SPUTUM CULTURE POSITIVE [None]
  - ANAEMIA [None]
  - FEMORAL PULSE DECREASED [None]
  - DRUG INEFFECTIVE [None]
  - HYPERTONIA [None]
  - MUSCULAR WEAKNESS [None]
  - CATATONIA [None]
  - HYPERREFLEXIA [None]
  - CYCLOTHYMIC DISORDER [None]
  - TEARFULNESS [None]
  - DISORIENTATION [None]
  - RESPIRATORY DISTRESS [None]
  - THROMBOCYTOPENIA [None]
  - ASPIRATION [None]
  - ENCEPHALOPATHY [None]
  - UNRESPONSIVE TO STIMULI [None]
  - PYREXIA [None]
  - INTENTION TREMOR [None]
